FAERS Safety Report 9377169 (Version 1)
Quarter: 2013Q3

REPORT INFORMATION
  Report Type: Spontaneous
  Country: US (occurrence: US)
  Receive Date: 20130701
  Receipt Date: 20130701
  Transmission Date: 20140515
  Serious: Yes (Other)
  Sender: FDA-Public Use
  Company Number: US-BAYER-2013-080083

PATIENT
  Age: 35 Year
  Sex: Female

DRUGS (5)
  1. YAZ [Suspect]
  2. MOTRIN [Concomitant]
     Dosage: UNK
     Dates: start: 20080714
  3. VICODIN [Concomitant]
     Dosage: UNK
     Dates: start: 20080714
  4. FLEXERIL [Concomitant]
     Dosage: UNK
     Dates: start: 20080714
  5. IBUPROFEN [Concomitant]
     Dosage: 800 MG, UNK
     Dates: start: 20080521

REACTIONS (2)
  - Deep vein thrombosis [None]
  - Cholelithiasis [None]
